FAERS Safety Report 25944505 (Version 1)
Quarter: 2025Q4

REPORT INFORMATION
  Report Type: Spontaneous
  Country: GB (occurrence: GB)
  Receive Date: 20251021
  Receipt Date: 20251021
  Transmission Date: 20260118
  Serious: Yes (Life-Threatening, Hospitalization)
  Sender: CHEPLAPHARM
  Company Number: None

PATIENT
  Age: 42 Year
  Sex: Female

DRUGS (2)
  1. OLANZAPINE [Suspect]
     Active Substance: OLANZAPINE
     Indication: Schizophrenia
  2. LURASIDONE [Suspect]
     Active Substance: LURASIDONE
     Indication: Schizophrenia

REACTIONS (8)
  - Rhabdomyolysis [Recovered/Resolved]
  - Hyponatraemia [Unknown]
  - Seizure [Unknown]
  - Myositis [Unknown]
  - Compartment syndrome [Unknown]
  - Peroneal nerve palsy [Unknown]
  - Polydipsia psychogenic [Unknown]
  - Liver function test abnormal [Unknown]
